FAERS Safety Report 5603750-4 (Version None)
Quarter: 2008Q1

REPORT INFORMATION
  Report Type: 
  Country: None (occurrence: None)
  Receive Date: 20080128
  Receipt Date: 20080110
  Transmission Date: 20080703
  Serious: Yes (Hospitalization)
  Sender: FDA-Public Use
  Company Number: ES-BAYER-200811406GPV

PATIENT

DRUGS (6)
  1. NAPROXEN [Interacting]
     Indication: DRUG USE FOR UNKNOWN INDICATION
     Route: 065
  2. ASPIRIN [Suspect]
     Indication: DRUG USE FOR UNKNOWN INDICATION
     Route: 065
  3. KETOROLAC [Interacting]
     Indication: DRUG USE FOR UNKNOWN INDICATION
     Route: 065
  4. TICLOPIDINE HCL [Interacting]
     Indication: DRUG USE FOR UNKNOWN INDICATION
     Route: 065
  5. CLOPIDOGREL [Interacting]
     Indication: DRUG USE FOR UNKNOWN INDICATION
     Route: 065
  6. TRIFLUSAL [Interacting]
     Indication: DRUG USE FOR UNKNOWN INDICATION
     Route: 065

REACTIONS (2)
  - DRUG INTERACTION [None]
  - PEPTIC ULCER HAEMORRHAGE [None]
